FAERS Safety Report 5869423-8 (Version None)
Quarter: 2008Q3

REPORT INFORMATION
  Report Type: 
  Country: None (occurrence: None)
  Receive Date: 20080828
  Receipt Date: 20080814
  Transmission Date: 20090109
  Serious: Yes (Death, Disabling)
  Sender: FDA-Public Use
  Company Number: 2008000951

PATIENT
  Age: 74 Year
  Sex: Male

DRUGS (11)
  1. ERLOTINIB (TABLET) [Suspect]
     Indication: LUNG ADENOCARCINOMA
     Dosage: 150 MG, QD, ORAL
     Route: 048
     Dates: start: 20080411, end: 20080414
  2. FLORID (MICONAZOLE NITRATE) [Concomitant]
  3. PRIMEPERAN (METOCLOPRAMIDE) [Concomitant]
  4. LANIRAPID (METILDIGOXIN) [Concomitant]
  5. FAMOTIDINE [Concomitant]
  6. WARFARIN SODIUM [Concomitant]
  7. ABILIT (SULPIRIDE) [Concomitant]
  8. AMOBAN (ZOPICLONE) [Concomitant]
  9. DESRYL (TRAZODONE) [Concomitant]
  10. BISOPROLOL FUMARATE [Concomitant]
  11. ALLEGRA [Concomitant]

REACTIONS (2)
  - INTERSTITIAL LUNG DISEASE [None]
  - SHOCK [None]
